FAERS Safety Report 18135112 (Version 3)
Quarter: 2020Q3

REPORT INFORMATION
  Report Type: Spontaneous
  Country: US (occurrence: US)
  Receive Date: 20200811
  Receipt Date: 20200828
  Transmission Date: 20201103
  Serious: No
  Sender: FDA-Public Use
  Company Number: US-LEXICON PHARMACEUTICALS, INC-20-1606-00609

PATIENT
  Age: 58 Year
  Sex: Female

DRUGS (5)
  1. TURMERIC [Concomitant]
     Active Substance: HERBALS\TURMERIC
  2. XERMELO [Suspect]
     Active Substance: TELOTRISTAT ETHYL
     Indication: CARCINOID TUMOUR OF THE SMALL BOWEL
     Dates: start: 20200527
  3. SANDOSTATIN [Concomitant]
     Active Substance: OCTREOTIDE ACETATE
     Dosage: HAS SA EVERY DAY
  4. XERMELO [Suspect]
     Active Substance: TELOTRISTAT ETHYL
  5. XERMELO [Suspect]
     Active Substance: TELOTRISTAT ETHYL
     Route: 048
     Dates: start: 20200814

REACTIONS (5)
  - Weight increased [Unknown]
  - Peripheral swelling [Recovering/Resolving]
  - Treatment noncompliance [Unknown]
  - Headache [Not Recovered/Not Resolved]
  - Fluid retention [Recovered/Resolved]
